FAERS Safety Report 6774007-3 (Version None)
Quarter: 2010Q2

REPORT INFORMATION
  Report Type: 
  Country: None (occurrence: None)
  Receive Date: 20100616
  Receipt Date: 20100616
  Transmission Date: 20101027
  Serious: Yes (Death)
  Sender: FDA-Public Use
  Company Number: None

PATIENT
  Age: 63 Year
  Sex: Female
  Weight: 60 kg

DRUGS (6)
  1. CIDOFOVIR [Suspect]
     Indication: CYTOMEGALOVIRUS VIRAEMIA
     Dosage: 180 MG (3MG/KG) TWICE WEEKLY ORAL 047
     Route: 048
     Dates: start: 20100423
  2. CIDOFOVIR [Suspect]
     Indication: CYTOMEGALOVIRUS VIRAEMIA
     Dosage: 180 MG (3MG/KG) TWICE WEEKLY ORAL 047
     Route: 048
     Dates: start: 20100524
  3. TACROLIMUS [Concomitant]
  4. PREDNISONE [Concomitant]
  5. CELLCEPT [Concomitant]
  6. DAPSONE [Concomitant]

REACTIONS (7)
  - ACUTE GRAFT VERSUS HOST DISEASE IN INTESTINE [None]
  - ATRIAL FIBRILLATION [None]
  - BLOOD BILIRUBIN INCREASED [None]
  - CYTOMEGALOVIRUS ENTERITIS [None]
  - GENERAL PHYSICAL HEALTH DETERIORATION [None]
  - HYPOTENSION [None]
  - NO THERAPEUTIC RESPONSE [None]
